FAERS Safety Report 15867080 (Version 2)
Quarter: 2019Q1

REPORT INFORMATION
  Report Type: Spontaneous
  Country: US (occurrence: US)
  Receive Date: 20190125
  Receipt Date: 20190125
  Transmission Date: 20190417
  Serious: Yes (Hospitalization)
  Sender: FDA-Public Use
  Company Number: US-CELGENEUS-USA-20190106714

PATIENT
  Age: 71 Year
  Sex: Male

DRUGS (1)
  1. REVLIMID [Suspect]
     Active Substance: LENALIDOMIDE
     Indication: PLASMA CELL MYELOMA
     Dosage: 25 MILLIGRAM
     Route: 048
     Dates: start: 20180914

REACTIONS (2)
  - Upper limb fracture [Recovered/Resolved with Sequelae]
  - Hip fracture [Recovered/Resolved with Sequelae]

NARRATIVE: CASE EVENT DATE: 201812
